FAERS Safety Report 6434477-7 (Version None)
Quarter: 2009Q4

REPORT INFORMATION
  Report Type: 
  Country: None (occurrence: None)
  Receive Date: 20091110
  Receipt Date: 20091028
  Transmission Date: 20100525
  Serious: Yes (Other)
  Sender: FDA-Public Use
  Company Number: ES-PFIZER INC-2009268440

PATIENT
  Age: 58 Year
  Sex: Female

DRUGS (6)
  1. TRANKIMAZIN RETARD [Suspect]
     Indication: ANXIETY
     Dosage: 0.5 MG, 1X/DAY
     Route: 048
     Dates: end: 20090207
  2. MOTIVAN [Interacting]
     Indication: DEPRESSION
     Dosage: 20 MG, UNK
     Route: 048
     Dates: start: 20090209
  3. TRANXILIUM [Interacting]
     Indication: ANXIETY
     Dosage: 5 MG, UNK
     Route: 048
     Dates: start: 20090207
  4. MIRAPEX [Interacting]
     Indication: RESTLESS LEGS SYNDROME
     Dosage: 0.18 MG, 1X/DAY
     Route: 048
     Dates: start: 20090210, end: 20090210
  5. COZAAR [Concomitant]
     Indication: HYPERTENSION
     Dosage: 50 MG, UNK
     Route: 048
     Dates: start: 20090207
  6. INDAPAMIDE [Concomitant]
     Dosage: 2.5 MG, 1X/DAY
     Route: 048
     Dates: end: 20090207

REACTIONS (4)
  - DRUG INTERACTION [None]
  - FATIGUE [None]
  - MALAISE [None]
  - SUDDEN ONSET OF SLEEP [None]
